FAERS Safety Report 12304395 (Version 1)
Quarter: 2016Q2

REPORT INFORMATION
  Report Type: Spontaneous
  Country: US (occurrence: None)
  Receive Date: 20160425
  Receipt Date: 20160425
  Transmission Date: 20160815
  Serious: Yes (Other)
  Sender: FDA-Public Use
  Company Number: None

PATIENT
  Age: 77 Year
  Sex: Male

DRUGS (18)
  1. FLOMAX [Concomitant]
     Active Substance: TAMSULOSIN HYDROCHLORIDE
  2. OMEPRAZOLE 20MG AKA PRILOSEC [Suspect]
     Active Substance: OMEPRAZOLE
     Indication: GASTRIC ULCER
     Route: 048
     Dates: start: 2008
  3. C PACK MACHINE [Concomitant]
  4. PROBIOTICS [Concomitant]
     Active Substance: PROBIOTICS NOS
  5. LOVASTATIN. [Concomitant]
     Active Substance: LOVASTATIN
  6. PAXIL [Concomitant]
     Active Substance: PAROXETINE HYDROCHLORIDE
  7. VITAMIN D3 [Concomitant]
     Active Substance: CHOLECALCIFEROL
  8. BABY ASPIRIN [Concomitant]
     Active Substance: ASPIRIN
  9. COZAAR [Concomitant]
     Active Substance: LOSARTAN POTASSIUM
  10. PROSCAR [Concomitant]
     Active Substance: FINASTERIDE
  11. CALCIUM [Concomitant]
     Active Substance: CALCIUM
  12. VITAMIN B12 [Concomitant]
     Active Substance: CYANOCOBALAMIN
  13. OMEPRAZOLE 20MG AKA PRILOSEC [Suspect]
     Active Substance: OMEPRAZOLE
     Indication: BARRETT^S OESOPHAGUS
     Route: 048
     Dates: start: 2008
  14. PRILOSEC [Concomitant]
     Active Substance: OMEPRAZOLE MAGNESIUM
  15. STOOL SOFNER [Concomitant]
  16. METAMUCIL [Concomitant]
     Active Substance: PLANTAGO SEED
  17. OMEPRAZOLE 20MG AKA PRILOSEC [Suspect]
     Active Substance: OMEPRAZOLE
     Indication: OESOPHAGITIS
     Route: 048
     Dates: start: 2008
  18. IRON [Concomitant]
     Active Substance: IRON

REACTIONS (2)
  - Osteoporosis [None]
  - Osteonecrosis [None]

NARRATIVE: CASE EVENT DATE: 2008
